FAERS Safety Report 8073357-0 (Version None)
Quarter: 2012Q1

REPORT INFORMATION
  Report Type: 
  Country: None (occurrence: None)
  Receive Date: 20120126
  Receipt Date: 20120118
  Transmission Date: 20120608
  Serious: Yes (Hospitalization, Other)
  Sender: FDA-Public Use
  Company Number: US-ACTELION-A-NJ2010-42056

PATIENT

DRUGS (7)
  1. TRACLEER [Suspect]
     Dosage: 62.5 MG, BID
     Route: 048
     Dates: start: 20070815, end: 20080201
  2. AMIODARONE HCL [Suspect]
     Dosage: UNK
     Dates: start: 20111201, end: 20120101
  3. SYMBICORT [Suspect]
     Dosage: UNK
     Dates: start: 20100928
  4. COUMADIN [Concomitant]
  5. PREDNISONE TAB [Concomitant]
     Dosage: UNK
     Dates: start: 20070825
  6. TRACLEER [Suspect]
     Indication: PULMONARY ARTERIAL HYPERTENSION
     Dosage: 125 MG, BID
     Route: 048
     Dates: start: 20080202
  7. REVATIO [Concomitant]

REACTIONS (11)
  - SWELLING [None]
  - PALPITATIONS [None]
  - CARDIAC DISORDER [None]
  - ATRIAL FIBRILLATION [None]
  - ATRIAL FLUTTER [None]
  - CARDIAC ABLATION [None]
  - IMPLANTABLE DEFIBRILLATOR INSERTION [None]
  - DYSPNOEA [None]
  - FATIGUE [None]
  - COUGH [None]
  - SUPRAVENTRICULAR TACHYCARDIA [None]
